FAERS Safety Report 6119908-4 (Version None)
Quarter: 2009Q1

REPORT INFORMATION
  Report Type: 
  Country: None (occurrence: None)
  Receive Date: 20090316
  Receipt Date: 20090303
  Transmission Date: 20090719
  Serious: Yes (Other)
  Sender: FDA-Public Use
  Company Number: CR-WYE-H08581509

PATIENT
  Age: 67 Year
  Sex: Female

DRUGS (7)
  1. PANTECTA [Suspect]
     Route: 048
  2. CYANOCOBALAMIN [Concomitant]
  3. LIVER EXTRACT [Concomitant]
  4. HYDRALAZINE HCL [Concomitant]
  5. AMINO ACIDS [Concomitant]
  6. EXFORGE [Suspect]
     Indication: HYPERTENSION
     Dosage: 10/320 MG, FREQUENCY UNKNOWN
     Route: 048
  7. INSULIN [Concomitant]

REACTIONS (4)
  - FALL [None]
  - HAND FRACTURE [None]
  - OSTEOPOROSIS [None]
  - RIB FRACTURE [None]
